FAERS Safety Report 24694779 (Version 1)
Quarter: 2024Q4

REPORT INFORMATION
  Report Type: Spontaneous
  Country: US (occurrence: US)
  Receive Date: 20241204
  Receipt Date: 20241204
  Transmission Date: 20250115
  Serious: No
  Sender: PACIRA
  Company Number: US-ORG100016242-2024000451

PATIENT
  Age: 68 Year
  Sex: Female

DRUGS (2)
  1. ZILRETTA [Suspect]
     Active Substance: TRIAMCINOLONE ACETONIDE
     Indication: Osteoarthritis
     Dosage: PATIENT TAKES SHOT EVERY 3 MONTHS; LEFT KNEE
     Route: 050
     Dates: start: 20240318, end: 20240318
  2. ZILRETTA [Suspect]
     Active Substance: TRIAMCINOLONE ACETONIDE
     Indication: Osteoarthritis
     Dosage: PATIENT TAKES SHOT EVERY 3 MONTHS; RIGHT KNEE
     Route: 050
     Dates: start: 20240618, end: 20240618

REACTIONS (4)
  - Recalled product administered [Unknown]
  - Therapeutic response shortened [Unknown]
  - Palpitations [Unknown]
  - Arthralgia [Not Recovered/Not Resolved]

NARRATIVE: CASE EVENT DATE: 20240318
